FAERS Safety Report 20306592 (Version 1)
Quarter: 2022Q1

REPORT INFORMATION
  Report Type: Spontaneous
  Country: CO (occurrence: CO)
  Receive Date: 20220106
  Receipt Date: 20220106
  Transmission Date: 20220423
  Serious: Yes (Other)
  Sender: FDA-Public Use
  Company Number: CO-BIOMARINP-000359

PATIENT
  Age: 16 Year
  Sex: Female

DRUGS (4)
  1. NAGLAZYME [Suspect]
     Active Substance: GALSULFASE
     Indication: Mucopolysaccharidosis VI
     Dosage: 25 MILLIGRAM, QW
     Route: 042
     Dates: start: 20131220
  2. NAGLAZYME [Suspect]
     Active Substance: GALSULFASE
     Dosage: 20 MILLIGRAM, QW
     Route: 042
     Dates: start: 20080515, end: 20080801
  3. NAGLAZYME [Suspect]
     Active Substance: GALSULFASE
     Dosage: 20 MILLIGRAM, QW
     Route: 042
     Dates: start: 20080926
  4. LEVOTHYROXINE [Concomitant]
     Active Substance: LEVOTHYROXINE
     Indication: Product used for unknown indication
     Dosage: 100 MICROGRAM, QD
     Route: 048

REACTIONS (8)
  - Encephalocele [Unknown]
  - Intracranial pressure increased [Unknown]
  - Brain malformation [Unknown]
  - Skull malformation [Unknown]
  - Myelopathy [Unknown]
  - Cerebral ventricle dilatation [Unknown]
  - Foramen magnum stenosis [Unknown]
  - Magnetic resonance imaging head abnormal [Unknown]

NARRATIVE: CASE EVENT DATE: 20100513
